FAERS Safety Report 4787116-5 (Version None)
Quarter: 2005Q4

REPORT INFORMATION
  Report Type: 
  Country: None (occurrence: None)
  Receive Date: 20051004
  Receipt Date: 20050927
  Transmission Date: 20060501
  Serious: Yes (Other)
  Sender: FDA-Public Use
  Company Number: US-GLAXOSMITHKLINE-A0575996A

PATIENT
  Age: 66 Year
  Sex: Female
  Weight: 72 kg

DRUGS (11)
  1. CITRUCEL SUGAR-FREE SUSPENSION ORANGE [Suspect]
     Route: 048
     Dates: start: 19900101
  2. METFORMIN [Concomitant]
  3. GLIPIZIDE [Concomitant]
  4. TRIAMTERENE AND HYDROCHLOROTHIAZIDE [Concomitant]
  5. TRENTAL [Concomitant]
  6. LISINOPRIL [Concomitant]
  7. ASPIRIN [Concomitant]
  8. LIPITOR [Concomitant]
  9. NEURONTIN [Concomitant]
  10. LOMOTIL [Concomitant]
  11. ALLERGY INJECTIONS [Concomitant]

REACTIONS (2)
  - CHOKING [None]
  - COUGH [None]
